FAERS Safety Report 8964383 (Version 1)
Quarter: 2012Q4

REPORT INFORMATION
  Report Type: 
  Country: US (occurrence: US)
  Receive Date: 20121214
  Receipt Date: 20121214
  Transmission Date: 20130627
  Serious: No
  Sender: FDA-Public Use
  Company Number: US-GLAXOSMITHKLINE-A0978751A

PATIENT
  Age: 71 Year
  Sex: Male

DRUGS (8)
  1. AVODART [Suspect]
     Indication: BENIGN PROSTATIC HYPERPLASIA
     Dosage: 1CAP Per day
     Route: 048
     Dates: start: 20120522
  2. COZAAR [Concomitant]
  3. PRAVACHOL [Concomitant]
  4. METANX [Concomitant]
  5. SYNTHROID [Concomitant]
  6. ECOTRIN [Concomitant]
  7. NIASPAN [Concomitant]
  8. IRON [Concomitant]

REACTIONS (3)
  - Eye disorder [Recovered/Resolved]
  - Lid sulcus deepened [Unknown]
  - Asthenia [Unknown]
